FAERS Safety Report 9123560 (Version 2)
Quarter: 2013Q1

REPORT INFORMATION
  Report Type: Spontaneous
  Country: CA (occurrence: CA)
  Receive Date: 20130227
  Receipt Date: 20130319
  Transmission Date: 20140127
  Serious: Yes (Other)
  Sender: FDA-Public Use
  Company Number: PHHY2013CA003833

PATIENT
  Sex: Female

DRUGS (2)
  1. ZOMETA [Suspect]
     Indication: LUNG NEOPLASM
     Dosage: 4 MG, EVERY 4 WEEKS
     Route: 042
     Dates: start: 20120621
  2. CHEMOTHERAPEUTICS [Concomitant]

REACTIONS (5)
  - Deep vein thrombosis [Not Recovered/Not Resolved]
  - Thrombosis [Unknown]
  - Haemoglobin decreased [Unknown]
  - Asthenia [Unknown]
  - Malaise [Unknown]
